FAERS Safety Report 7540339-4 (Version None)
Quarter: 2011Q2

REPORT INFORMATION
  Report Type: 
  Country: None (occurrence: None)
  Receive Date: 20110610
  Receipt Date: 20040416
  Transmission Date: 20111010
  Serious: Yes (Hospitalization)
  Sender: FDA-Public Use
  Company Number: PHHO2004CO04621

PATIENT
  Sex: Female

DRUGS (4)
  1. ACETAMINOPHEN [Concomitant]
     Indication: ANALGESIC THERAPY
  2. FEMARA [Suspect]
     Indication: BREAST CANCER
     Dosage: 4.5 MG/DAY
     Route: 048
     Dates: start: 20030701
  3. WARFARIN SODIUM [Concomitant]
     Indication: ANTICOAGULANT THERAPY
  4. TRAMADOL HYDROCHLORIDE [Concomitant]
     Indication: ANALGESIC THERAPY

REACTIONS (2)
  - HAEMORRHAGE [None]
  - HAEMATOMA [None]
